FAERS Safety Report 9412271 (Version 1)
Quarter: 2013Q2

REPORT INFORMATION
  Report Type: Spontaneous
  Country: DE (occurrence: None)
  Receive Date: 20130418
  Receipt Date: 20130418
  Transmission Date: 20140414
  Serious: Yes (Hospitalization)
  Sender: FDA-Public Use
  Company Number: UTC-014236

PATIENT
  Age: 58 Year
  Sex: Female
  Weight: 65 kg

DRUGS (3)
  1. REMODULIN (INJECTION FOR INFUSION) (TREPROSTINIL SODIUM) [Suspect]
     Indication: PULMONARY ARTERIAL HYPERTENSION
     Dosage: 57.6 UG/KG (0.04 UG/KG, 1 IN 1 MIN), INTRAVENOUS?
     Route: 042
     Dates: start: 2010
  2. REVATIO (SILDENAFIL CITRATE) (UNKNOWN) (SILDENAFIL) [Concomitant]
  3. VOLIBRIS (AMBRISENTAN) (UNKNOWN) [Concomitant]

REACTIONS (14)
  - Dyspnoea [None]
  - Flushing [None]
  - Blood pressure decreased [None]
  - Heart rate increased [None]
  - Implant site swelling [None]
  - Implant site pain [None]
  - Accidental overdose [None]
  - Circulatory collapse [None]
  - Dyspnoea [None]
  - Agitation [None]
  - Arrhythmia supraventricular [None]
  - Ventricular arrhythmia [None]
  - Ventricular tachycardia [None]
  - Akathisia [None]
